FAERS Safety Report 20327762 (Version 1)
Quarter: 2022Q1

REPORT INFORMATION
  Report Type: Spontaneous
  Country: US (occurrence: US)
  Receive Date: 20220112
  Receipt Date: 20220112
  Transmission Date: 20220423
  Serious: No
  Sender: FDA-Public Use
  Company Number: US-PFIZER INC-202101380215

PATIENT
  Age: 81 Year
  Sex: Female
  Weight: 68.027 kg

DRUGS (5)
  1. IBRANCE [Suspect]
     Active Substance: PALBOCICLIB
     Indication: Breast cancer female
     Dosage: 125 MG, CYCLIC (125 MG PO DAILY X 21 DAYS THEN 7 DAYS OFF)
     Route: 048
     Dates: start: 20210923
  2. CRANBERRY [Concomitant]
     Active Substance: CRANBERRY
     Dosage: UNK
  3. INOSITOL [Concomitant]
     Active Substance: INOSITOL
     Dosage: UNK
  4. LEVOMEFOLIC ACID [Concomitant]
     Active Substance: LEVOMEFOLIC ACID
     Dosage: UNK
  5. TYLENOL [Concomitant]
     Active Substance: ACETAMINOPHEN
     Dosage: UNK

REACTIONS (5)
  - Constipation [Unknown]
  - Nasal dryness [Unknown]
  - Fatigue [Unknown]
  - Appetite disorder [Unknown]
  - Weight decreased [Unknown]
